FAERS Safety Report 6843457-9 (Version None)
Quarter: 2010Q3

REPORT INFORMATION
  Report Type: 
  Country: None (occurrence: None)
  Receive Date: 20100715
  Receipt Date: 20100707
  Transmission Date: 20110219
  Serious: Yes (Other)
  Sender: FDA-Public Use
  Company Number: US-JNJFOC-20100702624

PATIENT
  Sex: Male
  Weight: 90.72 kg

DRUGS (5)
  1. DURAGESIC-100 [Suspect]
     Indication: BACK PAIN
     Dosage: 100 MCG + 100 MCG = 200 MCG, NDC NUMBER:5045809405
     Route: 062
  2. SOMA [Concomitant]
     Indication: MUSCLE SPASMS
     Route: 048
  3. VALIUM [Concomitant]
     Indication: PAIN
     Route: 048
  4. DILAUDID [Concomitant]
     Indication: BREAKTHROUGH PAIN
     Route: 048
  5. SEROQUEL [Concomitant]
     Indication: SLEEP DISORDER
     Route: 048

REACTIONS (3)
  - APPLICATION SITE RASH [None]
  - BLOOD CHOLESTEROL INCREASED [None]
  - WRONG TECHNIQUE IN DRUG USAGE PROCESS [None]
